FAERS Safety Report 9277102 (Version 1)
Quarter: 2013Q2

REPORT INFORMATION
  Report Type: Spontaneous
  Country: US (occurrence: US)
  Receive Date: 20130507
  Receipt Date: 20130507
  Transmission Date: 20140414
  Serious: Yes (Death)
  Sender: FDA-Public Use
  Company Number: US-ELI_LILLY_AND_COMPANY-US201304008782

PATIENT
  Age: 83 Year
  Sex: Female

DRUGS (1)
  1. FORTEO [Suspect]
     Indication: STRESS FRACTURE
     Dosage: 20 UG, QD
     Dates: start: 201110

REACTIONS (2)
  - Death [Fatal]
  - Off label use [Not Recovered/Not Resolved]
